FAERS Safety Report 8157750-3 (Version None)
Quarter: 2012Q1

REPORT INFORMATION
  Report Type: 
  Country: None (occurrence: None)
  Receive Date: 20120222
  Receipt Date: 20120220
  Transmission Date: 20120608
  Serious: No
  Sender: FDA-Public Use
  Company Number: US-PFIZER INC-2012044844

PATIENT
  Sex: Male

DRUGS (2)
  1. METFORMIN [Concomitant]
     Dosage: 500 MG, 2X/DAY
  2. LYRICA [Suspect]
     Indication: PAIN
     Dosage: 150 MG, 2X/DAY
     Route: 048
     Dates: start: 20090701

REACTIONS (1)
  - PAIN [None]
